FAERS Safety Report 19594621 (Version 1)
Quarter: 2021Q3

REPORT INFORMATION
  Report Type: Spontaneous
  Country: US (occurrence: US)
  Receive Date: 20210722
  Receipt Date: 20210722
  Transmission Date: 20211014
  Serious: Yes (Other)
  Sender: FDA-Public Use
  Company Number: US-DRREDDYS-SPO/USA/21/0137996

PATIENT
  Age: 38 Year
  Sex: Female

DRUGS (1)
  1. ZENATANE [Suspect]
     Active Substance: ISOTRETINOIN
     Indication: PRODUCT USED FOR UNKNOWN INDICATION
     Dosage: RMA ISSUE DATE:3/10/2021 1:09:52 PM,4/12/2021 7:31:17 PM,5/13/2021 8:10:47 PM,6/14/2021 5:38:45 PM
     Dates: start: 20210310, end: 20210709

REACTIONS (1)
  - Exposure during pregnancy [Unknown]
